FAERS Safety Report 12335057 (Version 1)
Quarter: 2016Q2

REPORT INFORMATION
  Report Type: Spontaneous
  Country: US (occurrence: US)
  Receive Date: 20160504
  Receipt Date: 20160504
  Transmission Date: 20160815
  Serious: No
  Sender: FDA-Public Use
  Company Number: US-ELI_LILLY_AND_COMPANY-US200707003507

PATIENT
  Age: 67 Year
  Sex: Female

DRUGS (13)
  1. SYNTHROID [Concomitant]
     Active Substance: LEVOTHYROXINE SODIUM
  2. LEXAPRO [Concomitant]
     Active Substance: ESCITALOPRAM OXALATE
     Dosage: 5 MG, UNK
  3. ZESTRIL [Concomitant]
     Active Substance: LISINOPRIL
     Indication: BLOOD PRESSURE MEASUREMENT
  4. LAMICTAL [Concomitant]
     Active Substance: LAMOTRIGINE
  5. VITAMINS NOS [Concomitant]
     Active Substance: VITAMINS
  6. ZYPREXA [Suspect]
     Active Substance: OLANZAPINE
     Indication: BIPOLAR DISORDER
     Dosage: UNK UNK, UNKNOWN
     Route: 065
     Dates: start: 2000
  7. ZYPREXA [Suspect]
     Active Substance: OLANZAPINE
     Dosage: 5 MG, UNKNOWN
     Route: 065
  8. LUNESTA [Concomitant]
     Active Substance: ESZOPICLONE
     Indication: INSOMNIA
  9. PREVACID [Concomitant]
     Active Substance: LANSOPRAZOLE
  10. TEMAZEPAM. [Concomitant]
     Active Substance: TEMAZEPAM
     Dosage: UNK, UNKNOWN
     Route: 065
  11. ZYPREXA [Suspect]
     Active Substance: OLANZAPINE
     Dosage: 5 MG, QD
     Route: 065
     Dates: start: 2011
  12. ZYPREXA [Suspect]
     Active Substance: OLANZAPINE
     Dosage: 3.75 MG, OTHER
     Dates: start: 2002
  13. LIPITOR [Concomitant]
     Active Substance: ATORVASTATIN CALCIUM

REACTIONS (3)
  - Weight increased [Unknown]
  - Impaired gastric emptying [Unknown]
  - Buccoglossal syndrome [Recovered/Resolved]

NARRATIVE: CASE EVENT DATE: 200704
